FAERS Safety Report 18275379 (Version 2)
Quarter: 2020Q3

REPORT INFORMATION
  Report Type: Not Available
  Country: US (occurrence: US)
  Receive Date: 20200916
  Receipt Date: 20200928
  Transmission Date: 20201103
  Serious: Yes (Hospitalization)
  Sender: FDA-Public Use
  Company Number: US-NEUROCRINE BIOSCIENCES INC.-2020NBI03296

PATIENT
  Age: 45 Year
  Sex: Male

DRUGS (1)
  1. INGREZZA [Suspect]
     Active Substance: VALBENAZINE
     Indication: TARDIVE DYSKINESIA
     Route: 048
     Dates: start: 20190524

REACTIONS (5)
  - Neck pain [Unknown]
  - Cervical spinal stenosis [Recovered/Resolved]
  - Pollakiuria [Unknown]
  - Procedural pain [Unknown]
  - Chills [Unknown]

NARRATIVE: CASE EVENT DATE: 2020
